FAERS Safety Report 9628141 (Version 2)
Quarter: 2013Q4

REPORT INFORMATION
  Report Type: Spontaneous
  Country: US (occurrence: US)
  Receive Date: 20131017
  Receipt Date: 20131025
  Transmission Date: 20140711
  Serious: Yes (Hospitalization)
  Sender: FDA-Public Use
  Company Number: US-BIOGENIDEC-2013BI098853

PATIENT
  Age: 43 Year
  Sex: Female

DRUGS (5)
  1. TYSABRI [Suspect]
     Indication: MULTIPLE SCLEROSIS
     Route: 042
     Dates: start: 20130829, end: 201309
  2. BACLOFEN [Concomitant]
  3. NEURONTIN [Concomitant]
  4. XANAX [Concomitant]
     Indication: DEPRESSION
  5. WELLBUTRIN [Concomitant]
     Indication: DEPRESSION

REACTIONS (17)
  - Confusional state [Unknown]
  - Psychotic disorder [Unknown]
  - Convulsion [Recovered/Resolved]
  - Loss of consciousness [Recovered/Resolved]
  - Pneumonia [Recovered/Resolved]
  - Orthopnoea [Recovered/Resolved]
  - Chest pain [Recovered/Resolved]
  - Sepsis [Recovered/Resolved]
  - Surgery [Not Recovered/Not Resolved]
  - Fungal infection [Not Recovered/Not Resolved]
  - Faecal incontinence [Recovered/Resolved]
  - Genital burning sensation [Not Recovered/Not Resolved]
  - Panic attack [Recovered/Resolved]
  - Asthenia [Recovered/Resolved]
  - Infusion related reaction [Not Recovered/Not Resolved]
  - Toxicity to various agents [Unknown]
  - Visual acuity reduced [Not Recovered/Not Resolved]
